FAERS Safety Report 26198008 (Version 2)
Quarter: 2025Q4

REPORT INFORMATION
  Report Type: Report from Study
  Country: JP (occurrence: JP)
  Receive Date: 20251224
  Receipt Date: 20251229
  Transmission Date: 20260118
  Serious: Yes (Other)
  Sender: JOHNSON AND JOHNSON
  Company Number: JP-JNJFOC-20251227045

PATIENT

DRUGS (4)
  1. RILPIVIRINE [Suspect]
     Active Substance: RILPIVIRINE
     Indication: HIV infection
     Dosage: EVERY 1 TO 2 MONTHS
     Route: 030
  2. EDURANT [Suspect]
     Active Substance: RILPIVIRINE HYDROCHLORIDE
     Indication: HIV infection
     Route: 048
  3. CABOTEGRAVIR SODIUM [Concomitant]
     Active Substance: CABOTEGRAVIR SODIUM
     Indication: HIV infection
     Route: 048
  4. CABOTEGRAVIR [Concomitant]
     Active Substance: CABOTEGRAVIR
     Indication: HIV infection
     Dosage: EVERY 1 TO 2 MONTHS
     Route: 030

REACTIONS (23)
  - Injection site pain [Unknown]
  - Alanine aminotransferase increased [Unknown]
  - Injection site reaction [Unknown]
  - Acute myocardial infarction [Unknown]
  - Deafness [Unknown]
  - Drug ineffective [Unknown]
  - Limb discomfort [Unknown]
  - Peripheral swelling [Unknown]
  - Dizziness [Unknown]
  - Fatigue [Unknown]
  - Ear congestion [Unknown]
  - Blood pressure fluctuation [Unknown]
  - Depression [Unknown]
  - Joint stiffness [Unknown]
  - Injection site swelling [Unknown]
  - Headache [Unknown]
  - Pyrexia [Unknown]
  - Chills [Unknown]
  - Dyspepsia [Unknown]
  - Off label use [Unknown]
  - Dysaesthesia [Unknown]
  - Diarrhoea [Unknown]
  - Paraesthesia [Unknown]
